FAERS Safety Report 22269647 (Version 1)
Quarter: 2023Q2

REPORT INFORMATION
  Report Type: Spontaneous
  Country: US (occurrence: US)
  Receive Date: 20230501
  Receipt Date: 20230501
  Transmission Date: 20230721
  Serious: No
  Sender: FDA-Public Use
  Company Number: US-BAYER-2023A059588

PATIENT
  Age: 65 Year
  Sex: Male

DRUGS (2)
  1. CLARITIN REDITABS [Suspect]
     Active Substance: LORATADINE
     Indication: Sneezing
     Dosage: 2 DF, QD
     Route: 048
     Dates: start: 20230424, end: 20230427
  2. CLARITIN REDITABS [Suspect]
     Active Substance: LORATADINE
     Indication: Headache

REACTIONS (2)
  - Drug ineffective [Unknown]
  - Product use in unapproved indication [None]
